FAERS Safety Report 21794078 (Version 2)
Quarter: 2023Q1

REPORT INFORMATION
  Report Type: Spontaneous
  Country: PT (occurrence: PT)
  Receive Date: 20221229
  Receipt Date: 20230110
  Transmission Date: 20230417
  Serious: Yes (Life-Threatening, Hospitalization, Other)
  Sender: FDA-Public Use
  Company Number: PT-MYLANLABS-2022M1129465

PATIENT
  Age: 91 Year
  Sex: Female

DRUGS (12)
  1. ROPIVACAINE [Suspect]
     Active Substance: ROPIVACAINE
     Indication: Anaesthesia eye
     Dosage: 2.5 MILLILITER
     Route: 065
  2. LIDOCAINE [Suspect]
     Active Substance: LIDOCAINE
     Indication: Anaesthesia eye
     Dosage: 2.5 MILLILITER TO 2 PERCENT
     Route: 065
  3. LIDOCAINE [Suspect]
     Active Substance: LIDOCAINE
     Indication: Local anaesthesia
  4. FENTANYL [Concomitant]
     Active Substance: FENTANYL
     Indication: Local anaesthesia
     Dosage: 20 MICROGRAM
     Route: 065
  5. FENTANYL [Concomitant]
     Active Substance: FENTANYL
     Indication: Analgesic therapy
  6. FENTANYL [Concomitant]
     Active Substance: FENTANYL
     Indication: Sedative therapy
  7. DROPERIDOL [Concomitant]
     Active Substance: DROPERIDOL
     Indication: Local anaesthesia
     Dosage: 0.63 MILLIGRAM
     Route: 065
  8. DROPERIDOL [Concomitant]
     Active Substance: DROPERIDOL
     Indication: Analgesic therapy
  9. DROPERIDOL [Concomitant]
     Active Substance: DROPERIDOL
     Indication: Sedative therapy
  10. FUROSEMIDE [Concomitant]
     Active Substance: FUROSEMIDE
     Dosage: 20 MILLIGRAM, QD
     Route: 065
  11. ACETAMINOPHEN [Concomitant]
     Active Substance: ACETAMINOPHEN
     Dosage: UNK, PRN (SOS)
     Route: 065
  12. PROPOFOL [Concomitant]
     Active Substance: PROPOFOL
     Dosage: 20 MILLIGRAM
     Route: 065

REACTIONS (7)
  - Anaesthetic complication [Recovered/Resolved]
  - Altered state of consciousness [Recovered/Resolved]
  - Central sleep apnoea syndrome [Unknown]
  - Mydriasis [Recovered/Resolved]
  - Apnoea [Recovered/Resolved]
  - Sinus tachycardia [Recovered/Resolved]
  - Hypertension [Recovered/Resolved]
